FAERS Safety Report 20074496 (Version 3)
Quarter: 2022Q3

REPORT INFORMATION
  Report Type: Spontaneous
  Country: CA (occurrence: CA)
  Receive Date: 20211116
  Receipt Date: 20220720
  Transmission Date: 20221027
  Serious: Yes (Other)
  Sender: FDA-Public Use
  Company Number: CA-PFIZER INC-202101539452

PATIENT
  Age: 36 Year
  Sex: Male

DRUGS (2)
  1. XELJANZ [Suspect]
     Active Substance: TOFACITINIB CITRATE
     Indication: Colitis ulcerative
     Dosage: 10 MG, 2X/DAY
     Route: 048
     Dates: start: 20210907
  2. ASACOL [Concomitant]
     Active Substance: MESALAMINE
     Dosage: 400 MG, 6 PILLS DAILY

REACTIONS (4)
  - Blood pressure diastolic increased [Unknown]
  - Hypertension [Unknown]
  - Frequent bowel movements [Unknown]
  - Product dose omission issue [Unknown]

NARRATIVE: CASE EVENT DATE: 20210101
